FAERS Safety Report 5870195-1 (Version None)
Quarter: 2008Q3

REPORT INFORMATION
  Report Type: 
  Country: None (occurrence: None)
  Receive Date: 20080902
  Receipt Date: 20080822
  Transmission Date: 20090109
  Serious: Yes (Other)
  Sender: FDA-Public Use
  Company Number: 2008US002174

PATIENT
  Age: 68 Year
  Sex: Male
  Weight: 92.5 kg

DRUGS (10)
  1. TACROLIMUS [Suspect]
     Indication: RENAL TRANSPLANT
     Dosage: 0.75 MG, BID, ORAL
     Route: 048
     Dates: start: 20040310
  2. CELLCEPT [Concomitant]
  3. PREDNISONE TAB [Concomitant]
  4. CARDURA [Concomitant]
  5. COREG [Concomitant]
  6. METOPROLOL SUCCINATE [Concomitant]
  7. MANOXIDIL (MINOXIDIL) [Concomitant]
  8. PRAVACHOL [Concomitant]
  9. TORSEMIDE [Concomitant]
  10. NORVASC [Concomitant]

REACTIONS (7)
  - ADHESION [None]
  - LYMPHOID TISSUE HYPERPLASIA [None]
  - OXYGEN SATURATION DECREASED [None]
  - PHARYNGOTONSILLITIS [None]
  - SLEEP APNOEA SYNDROME [None]
  - SUPRAVENTRICULAR EXTRASYSTOLES [None]
  - VENTRICULAR EXTRASYSTOLES [None]
